FAERS Safety Report 7801895-1 (Version None)
Quarter: 2011Q4

REPORT INFORMATION
  Report Type: 
  Country: None (occurrence: None)
  Receive Date: 20111007
  Receipt Date: 20110926
  Transmission Date: 20120403
  Serious: Yes (Life-Threatening, Hospitalization, Other)
  Sender: FDA-Public Use
  Company Number: FR-ELI_LILLY_AND_COMPANY-FR201109007084

PATIENT
  Sex: Male

DRUGS (5)
  1. PROZAC [Suspect]
     Dosage: UNK, QD
     Route: 048
     Dates: start: 20110617, end: 20110623
  2. RILUTEK [Concomitant]
     Indication: AMYOTROPHIC LATERAL SCLEROSIS
     Dosage: 1 DF, QD
     Route: 048
     Dates: start: 20110401, end: 20110701
  3. ATORVASTATIN CALCIUM [Concomitant]
     Dosage: 40 MG, UNK
     Route: 048
  4. IRBESARTAN [Concomitant]
  5. OXAZEPAM [Concomitant]

REACTIONS (4)
  - DYSPNOEA [None]
  - INTERSTITIAL LUNG DISEASE [None]
  - PULMONARY FIBROSIS [None]
  - EMPHYSEMA [None]
